FAERS Safety Report 12010753 (Version 2)
Quarter: 2016Q1

REPORT INFORMATION
  Report Type: Report from Study
  Country: US (occurrence: US)
  Receive Date: 20160205
  Receipt Date: 20160308
  Transmission Date: 20160526
  Serious: No
  Sender: FDA-Public Use
  Company Number: US-AMGEN-USASL2016011433

PATIENT
  Age: 48 Year
  Sex: Male

DRUGS (1)
  1. ENBREL [Suspect]
     Active Substance: ETANERCEPT
     Indication: RHEUMATOID ARTHRITIS
     Dosage: 50 MG, WEEKLY
     Route: 065
     Dates: start: 20151130

REACTIONS (10)
  - Renal function test abnormal [Unknown]
  - Infection [Unknown]
  - Bronchitis [Unknown]
  - Skin exfoliation [Recovering/Resolving]
  - Mass [Recovering/Resolving]
  - Swelling [Unknown]
  - Abdominal pain [Unknown]
  - Pain in extremity [Unknown]
  - Pruritus [Recovering/Resolving]
  - Erythema [Recovering/Resolving]

NARRATIVE: CASE EVENT DATE: 201512
